FAERS Safety Report 19856675 (Version 2)
Quarter: 2021Q3

REPORT INFORMATION
  Report Type: Spontaneous
  Country: US (occurrence: US)
  Receive Date: 20210920
  Receipt Date: 20210927
  Transmission Date: 20211014
  Serious: Yes (Hospitalization)
  Sender: FDA-Public Use
  Company Number: US-BAUSCH-BL-2021-031908

PATIENT
  Sex: Female

DRUGS (5)
  1. SYPRINE [Suspect]
     Active Substance: TRIENTINE HYDROCHLORIDE
     Dosage: GRADUALLY INCREASED AND THE FINAL DOSAGE IS OF 250 MG
     Route: 048
  2. SERENACE [Concomitant]
     Active Substance: HALOPERIDOL
     Indication: HEPATO-LENTICULAR DEGENERATION
  3. FLUNIL [Concomitant]
     Indication: HEPATO-LENTICULAR DEGENERATION
  4. SYPRINE [Suspect]
     Active Substance: TRIENTINE HYDROCHLORIDE
     Indication: HEPATO-LENTICULAR DEGENERATION
     Dosage: STARTED ON 11 YEARS AGO
     Route: 048
  5. OLANZAPINE. [Concomitant]
     Active Substance: OLANZAPINE
     Indication: HEPATO-LENTICULAR DEGENERATION

REACTIONS (6)
  - Drug ineffective [Unknown]
  - Product temperature excursion issue [Unknown]
  - Condition aggravated [Not Recovered/Not Resolved]
  - Treatment noncompliance [Unknown]
  - Hepato-lenticular degeneration [Not Recovered/Not Resolved]
  - Therapy cessation [Unknown]

NARRATIVE: CASE EVENT DATE: 202106
